FAERS Safety Report 18517390 (Version 1)
Quarter: 2020Q4

REPORT INFORMATION
  Report Type: Spontaneous
  Country: US (occurrence: US)
  Receive Date: 20201118
  Receipt Date: 20201118
  Transmission Date: 20210114
  Serious: No
  Sender: FDA-Public Use
  Company Number: None

PATIENT
  Age: 80 Year
  Sex: Male
  Weight: 83.25 kg

DRUGS (11)
  1. CLOPIDOGREL [Concomitant]
     Active Substance: CLOPIDOGREL BISULFATE
  2. MEMANTINE. [Suspect]
     Active Substance: MEMANTINE
     Indication: MEMORY IMPAIRMENT
     Route: 048
  3. AMLODIPINE [Concomitant]
     Active Substance: AMLODIPINE BESYLATE
  4. HYDROCHLOROTHIAZIDE. [Concomitant]
     Active Substance: HYDROCHLOROTHIAZIDE
  5. ATORVASTATIN [Concomitant]
     Active Substance: ATORVASTATIN
  6. JANUVIA [Concomitant]
     Active Substance: SITAGLIPTIN PHOSPHATE
  7. BYSTOLIC [Concomitant]
     Active Substance: NEBIVOLOL HYDROCHLORIDE
  8. GLIPIZIDE. [Concomitant]
     Active Substance: GLIPIZIDE
  9. HEMP [Concomitant]
     Active Substance: HEMP
  10. DONEPEZIL. [Concomitant]
     Active Substance: DONEPEZIL
  11. JUVENON [Concomitant]

REACTIONS (1)
  - Diarrhoea [None]

NARRATIVE: CASE EVENT DATE: 20200801
